FAERS Safety Report 5478008-7 (Version None)
Quarter: 2007Q4

REPORT INFORMATION
  Report Type: 
  Country: None (occurrence: None)
  Receive Date: 20071005
  Receipt Date: 20070925
  Transmission Date: 20080405
  Serious: Yes (Hospitalization, Other)
  Sender: FDA-Public Use
  Company Number: US-BAYER-200713077BCC

PATIENT
  Age: 73 Year
  Sex: Female

DRUGS (5)
  1. ASPIRIN [Suspect]
     Indication: ANTITHROMBIN III DEFICIENCY
     Route: 048
     Dates: end: 20070701
  2. PLAVIX [Suspect]
     Indication: ANTITHROMBIN III DEFICIENCY
     Dosage: TOTAL DAILY DOSE: 75 MG  UNIT DOSE: 75 MG
     Route: 048
     Dates: end: 20070701
  3. WARFARIN SODIUM [Suspect]
     Indication: THROMBOPHLEBITIS
     Route: 048
  4. MONTELUKAST SODIUM [Concomitant]
  5. THEOPHYLLINE [Concomitant]

REACTIONS (2)
  - CEREBRAL HAEMORRHAGE [None]
  - INTERNATIONAL NORMALISED RATIO INCREASED [None]
